FAERS Safety Report 9299916 (Version 1)
Quarter: 2013Q1

REPORT INFORMATION
  Report Type: Spontaneous
  Country: US (occurrence: None)
  Receive Date: 20130107
  Receipt Date: 20130107
  Transmission Date: 20140127
  Serious: Yes (Other)
  Sender: FDA-Public Use
  Company Number: PHEH2012US020567

PATIENT
  Sex: Female

DRUGS (4)
  1. GILENYA [Suspect]
     Indication: MULTIPLE SCLEROSIS
     Route: 048
     Dates: start: 20120626, end: 20121005
  2. FAMPRIDINE (FAMPRIDINE) [Concomitant]
  3. ASTELIN (AZELASTINE HYDROCHLORIDE) [Concomitant]
  4. VESICARE (SOLIFENACIN) [Concomitant]

REACTIONS (2)
  - Macular oedema [None]
  - Visual impairment [None]
